FAERS Safety Report 7055307-9 (Version None)
Quarter: 2010Q4

REPORT INFORMATION
  Report Type: 
  Country: None (occurrence: None)
  Receive Date: 20101020
  Receipt Date: 20101020
  Transmission Date: 20110411
  Serious: Yes (Life-Threatening, Other)
  Sender: FDA-Public Use
  Company Number: None

PATIENT
  Age: 30 Year
  Sex: Female
  Weight: 56.6996 kg

DRUGS (5)
  1. DEPAKOTE [Suspect]
     Indication: MIGRAINE
     Dosage: 500 MG 2X DAILY ORAL
     Route: 048
     Dates: start: 20030101
  2. TOPAMAX [Concomitant]
  3. VERAPMIL [Concomitant]
  4. KEPPRA [Concomitant]
  5. DIVALPROX  ER [Concomitant]

REACTIONS (5)
  - ABNORMAL BEHAVIOUR [None]
  - ALOPECIA [None]
  - COGNITIVE DISORDER [None]
  - NERVOUS SYSTEM DISORDER [None]
  - WEIGHT DECREASED [None]
